FAERS Safety Report 12736208 (Version 1)
Quarter: 2016Q3

REPORT INFORMATION
  Report Type: Spontaneous
  Country: US (occurrence: US)
  Receive Date: 20160913
  Receipt Date: 20160913
  Transmission Date: 20161109
  Serious: No
  Sender: FDA-Public Use
  Company Number: US-DRREDDYS-USA/USA/16/0081213

PATIENT
  Age: 49 Year
  Sex: Male
  Weight: 111.13 kg

DRUGS (1)
  1. FEXOFENADINE HCL 60 MG AND PSEUDOEPHEDRINE HCL ER 120 MG [Suspect]
     Active Substance: FEXOFENADINE HYDROCHLORIDE\PSEUDOEPHEDRINE HYDROCHLORIDE
     Indication: HYPERSENSITIVITY
     Route: 048
     Dates: start: 20160703

REACTIONS (3)
  - Medication residue present [Unknown]
  - Product quality issue [Unknown]
  - Drug ineffective [Unknown]

NARRATIVE: CASE EVENT DATE: 20160704
